FAERS Safety Report 23795470 (Version 1)
Quarter: 2024Q2

REPORT INFORMATION
  Report Type: Spontaneous
  Country: US (occurrence: US)
  Receive Date: 20240429
  Receipt Date: 20240429
  Transmission Date: 20240716
  Serious: Yes (Other)
  Sender: FDA-Public Use
  Company Number: US-ELI_LILLY_AND_COMPANY-US202404012950

PATIENT
  Age: 78 Year
  Sex: Female

DRUGS (1)
  1. HUMALOG [Suspect]
     Active Substance: INSULIN LISPRO
     Indication: Diabetes mellitus
     Dosage: UNK UNK, UNKNOWN
     Route: 065

REACTIONS (5)
  - Renal failure [Unknown]
  - Multiple organ dysfunction syndrome [Unknown]
  - Pancreatic disorder [Unknown]
  - Atrial fibrillation [Unknown]
  - Cardiac disorder [Unknown]
